FAERS Safety Report 16866974 (Version 1)
Quarter: 2019Q4

REPORT INFORMATION
  Report Type: Spontaneous
  Country: US (occurrence: US)
  Receive Date: 20190929
  Receipt Date: 20190929
  Transmission Date: 20200122
  Serious: No
  Sender: FDA-Public Use
  Company Number: None

PATIENT
  Age: 48 Year
  Sex: Female

DRUGS (9)
  1. NATURE-THROID [Suspect]
     Active Substance: THYROID, PORCINE
     Indication: POST PROCEDURAL HYPOTHYROIDISM
     Dates: start: 20150201, end: 20190929
  2. LUNESTA [Concomitant]
     Active Substance: ESZOPICLONE
  3. ADVAIR HFA [Concomitant]
     Active Substance: FLUTICASONE PROPIONATE\SALMETEROL XINAFOATE
  4. SPIRANLACTONE [Concomitant]
  5. HYDROCORTISONE. [Concomitant]
     Active Substance: HYDROCORTISONE
  6. LIOTHRONINE [Concomitant]
  7. FLOVANE-PLUS [Concomitant]
  8. PROGESTERONE. [Concomitant]
     Active Substance: PROGESTERONE
  9. HYDROCHLOROTHIAZIDE. [Concomitant]
     Active Substance: HYDROCHLOROTHIAZIDE

REACTIONS (5)
  - Somnolence [None]
  - Feeling abnormal [None]
  - Pain [None]
  - Drug ineffective [None]
  - Weight increased [None]

NARRATIVE: CASE EVENT DATE: 20190101
